FAERS Safety Report 4647377-X (Version None)
Quarter: 2005Q2

REPORT INFORMATION
  Report Type: 
  Country: None (occurrence: None)
  Receive Date: 20050427
  Receipt Date: 20050427
  Transmission Date: 20051028
  Serious: Yes (Other)
  Sender: FDA-Public Use
  Company Number: None

PATIENT
  Sex: Male
  Weight: 121.1104 kg

DRUGS (15)
  1. PRAZOSIN HCL [Suspect]
     Indication: HYPERHIDROSIS
     Dosage: 3-5 CAPS AT BEDTIME PM ORAL
     Route: 048
     Dates: start: 20050126, end: 20050201
  2. PRAZOSIN HCL [Suspect]
     Indication: NIGHTMARE
     Dosage: 3-5 CAPS AT BEDTIME PM ORAL
     Route: 048
     Dates: start: 20050126, end: 20050201
  3. QUETIAPINE 100 MG [Suspect]
     Indication: NIGHTMARE
     Dosage: 1 TAB AT BEDTIME ORAL
     Route: 047
     Dates: start: 20050126, end: 20050201
  4. AMMONIUM LACTATE [Concomitant]
  5. ASPIRIN [Concomitant]
  6. CROMOLYN SODIUM [Concomitant]
  7. DIVALPROEX SODIUM [Concomitant]
  8. HYDROCHLOROTHIAZIDE [Concomitant]
  9. HYDROXYZINE PAMOATE [Concomitant]
  10. LISINOPRIL [Concomitant]
  11. LORATADINE [Concomitant]
  12. MICONAZOLE NITRATE [Concomitant]
  13. RANITIDINE HCL [Concomitant]
  14. SIMVASTATIN [Concomitant]
  15. VENLAFAXINE HCL [Concomitant]

REACTIONS (4)
  - CHEILITIS [None]
  - PHARYNGEAL OEDEMA [None]
  - STOMATITIS [None]
  - TONGUE DISORDER [None]
